FAERS Safety Report 13297602 (Version 1)
Quarter: 2017Q1

REPORT INFORMATION
  Report Type: Spontaneous
  Country: US (occurrence: US)
  Receive Date: 20170303
  Receipt Date: 20170303
  Transmission Date: 20170428
  Serious: Yes (Other)
  Sender: FDA-Public Use
  Company Number: None

PATIENT
  Age: 73 Year
  Sex: Female
  Weight: 70.2 kg

DRUGS (10)
  1. AZELESTINE [Concomitant]
     Active Substance: AZELASTINE
  2. CENTRUM SILVER MULTIVITAMIN [Concomitant]
  3. EZETIMIBE 10 MG [Suspect]
     Active Substance: EZETIMIBE
     Indication: BLOOD CHOLESTEROL INCREASED
     Dosage: ?          QUANTITY:1 TABLET(S);?AT BEDTIME ORAL
     Route: 048
     Dates: start: 20170116, end: 20170211
  4. METRONIDAZOLE GEL [Concomitant]
  5. OMEGA 3 [Concomitant]
     Active Substance: OMEGA-3 FATTY ACIDS
  6. BIOTIN [Concomitant]
     Active Substance: BIOTIN
  7. COSIMIN DS [Concomitant]
  8. RESTASIS [Concomitant]
     Active Substance: CYCLOSPORINE
  9. VAGIFEM VAGINAL TABLETS [Concomitant]
  10. VITAMIN D [Concomitant]
     Active Substance: CHOLECALCIFEROL

REACTIONS (3)
  - Muscle spasms [None]
  - Fall [None]
  - Contusion [None]

NARRATIVE: CASE EVENT DATE: 20170211
